FAERS Safety Report 10861436 (Version 2)
Quarter: 2018Q1

REPORT INFORMATION
  Report Type: Spontaneous
  Country: KP (occurrence: KP)
  Receive Date: 20150224
  Receipt Date: 20180116
  Transmission Date: 20180508
  Serious: Yes (Other)
  Sender: FDA-Public Use
  Company Number: KP-CIPLA LTD.-2015KP01308

PATIENT

DRUGS (3)
  1. CARBOPLATIN. [Suspect]
     Active Substance: CARBOPLATIN
     Indication: CERVIX CARCINOMA
     Dosage: UNK, SIX CYCLES
     Route: 065
     Dates: start: 201110, end: 201201
  2. PACLITAXEL. [Suspect]
     Active Substance: PACLITAXEL
     Indication: CERVIX CARCINOMA
     Dosage: UNK, SIX CYCLES
     Route: 065
     Dates: start: 201110, end: 201201
  3. CISPLATIN. [Suspect]
     Active Substance: CISPLATIN
     Indication: CERVIX CARCINOMA
     Dosage: UNK
     Route: 065

REACTIONS (2)
  - Metastasis [Unknown]
  - Recall phenomenon [Recovered/Resolved]

NARRATIVE: CASE EVENT DATE: 201104
